FAERS Safety Report 10089812 (Version 1)
Quarter: 2014Q2

REPORT INFORMATION
  Report Type: Spontaneous
  Country: IT (occurrence: IT)
  Receive Date: 20140421
  Receipt Date: 20140421
  Transmission Date: 20141212
  Serious: Yes (Other)
  Sender: FDA-Public Use
  Company Number: IT-WATSON-2014-07466

PATIENT
  Age: 81 Year
  Sex: Female

DRUGS (2)
  1. LEVOFLOXACIN (UNKNOWN) [Suspect]
     Indication: PHLEBITIS SUPERFICIAL
     Dosage: 500 MG, DAILY
     Route: 048
  2. ENOXAPARIN [Suspect]
     Indication: PHLEBITIS SUPERFICIAL
     Dosage: 4000 U, DAILY
     Route: 058

REACTIONS (4)
  - Hypoglycaemia [Recovered/Resolved]
  - Unresponsive to stimuli [Recovered/Resolved]
  - Stupor [Recovered/Resolved]
  - Oedema [Unknown]
